FAERS Safety Report 4930467-1 (Version None)
Quarter: 2006Q1

REPORT INFORMATION
  Report Type: 
  Country: None (occurrence: None)
  Receive Date: 20060302
  Receipt Date: 20060224
  Transmission Date: 20060701
  Serious: Yes (Hospitalization)
  Sender: FDA-Public Use
  Company Number: AU-BRISTOL-MYERS SQUIBB COMPANY-13294475

PATIENT
  Age: 73 Year
  Sex: Male

DRUGS (5)
  1. TEQUIN [Suspect]
     Route: 048
     Dates: start: 20011025, end: 20020410
  2. PRAVASTATIN SODIUM [Suspect]
     Route: 048
     Dates: start: 20011009
  3. RAMIPRIL [Suspect]
     Route: 048
     Dates: start: 20011007, end: 20020410
  4. METOPROLOL [Concomitant]
     Dates: start: 20011006
  5. ASPIRIN [Concomitant]
     Dates: start: 20011006

REACTIONS (1)
  - RENAL FAILURE [None]
